FAERS Safety Report 5307024-0 (Version None)
Quarter: 2007Q2

REPORT INFORMATION
  Report Type: 
  Country: None (occurrence: None)
  Receive Date: 20070420
  Receipt Date: 20070420
  Transmission Date: 20071010
  Serious: Yes (Other)
  Sender: FDA-Public Use
  Company Number: None

PATIENT
  Sex: Female
  Weight: 67.586 kg

DRUGS (10)
  1. HYDROXYCHLOROQUIN [Suspect]
     Dosage: 200MG 2 Q D
     Dates: start: 19960101
  2. PREDNISONE TAB [Concomitant]
  3. RELIFEN [Concomitant]
  4. DYAZIDE [Concomitant]
  5. MONOPRIL [Concomitant]
  6. PRAVACHOL [Concomitant]
  7. CALTRATE [Concomitant]
  8. M.V.I. [Concomitant]
  9. FISH OIL [Concomitant]
  10. ASPIRIN [Concomitant]

REACTIONS (2)
  - MACULOPATHY [None]
  - VISION BLURRED [None]
